FAERS Safety Report 7245875-6 (Version None)
Quarter: 2011Q1

REPORT INFORMATION
  Report Type: 
  Country: None (occurrence: None)
  Receive Date: 20110126
  Receipt Date: 20110113
  Transmission Date: 20110831
  Serious: Yes (Death, Other)
  Sender: FDA-Public Use
  Company Number: JP-ELI_LILLY_AND_COMPANY-JP201101003658

PATIENT
  Age: 45 Year
  Sex: Female

DRUGS (15)
  1. SEROQUEL [Concomitant]
     Dosage: 400 MG, BEFORE BEDTIME
     Route: 048
  2. SEROQUEL [Concomitant]
     Dosage: 100 MG, 3/D
     Route: 048
  3. RIVOTRIL [Concomitant]
     Dosage: 1 MG, AS NEEDED
     Route: 048
  4. ZYPREXA [Suspect]
     Indication: SCHIZOPHRENIA
     Dosage: 10 MG, DAILY (1/D)
     Route: 048
     Dates: start: 20090824, end: 20090913
  5. ZYPREXA [Suspect]
     Dosage: 10 MG, 3/2 WEEKS
     Route: 048
     Dates: start: 20090608
  6. BENZALIN [Concomitant]
     Dosage: 5 MG, DAILY (1/D)
     Route: 048
  7. ZYPREXA [Suspect]
     Dosage: 10 MG, AS NEEDED
     Route: 048
     Dates: start: 20090824, end: 20090913
  8. DEPAS [Concomitant]
     Dosage: 3 MG, BEFORE BEDTIME
     Route: 048
  9. HIRNAMIN [Concomitant]
     Dosage: 50 MG, AS NEEDED
     Route: 048
  10. ARTANE [Concomitant]
     Dosage: 2 MG, 3/D
     Route: 048
  11. BENZALIN [Concomitant]
     Dosage: 5 MG, BEFORE BEDTIME
     Route: 048
  12. ZYPREXA [Suspect]
     Dosage: 20 MG, DAILY (1/D)
     Route: 048
     Dates: start: 20090914
  13. LONASEN [Concomitant]
     Dosage: 8 MG, 3/D
     Route: 048
  14. DEPAS [Concomitant]
     Dosage: 1 MG, 3/D
     Route: 048
  15. HIRNAMIN [Concomitant]
     Dosage: 100 MG, BEFORE BEDTIME
     Route: 048

REACTIONS (3)
  - TOXICITY TO VARIOUS AGENTS [None]
  - SYNCOPE [None]
  - INAPPROPRIATE SCHEDULE OF DRUG ADMINISTRATION [None]
